FAERS Safety Report 8587483-0 (Version None)
Quarter: 2012Q3

REPORT INFORMATION
  Report Type: 
  Country: None (occurrence: None)
  Receive Date: 20120810
  Receipt Date: 20120806
  Transmission Date: 20120928
  Serious: Yes (Other)
  Sender: FDA-Public Use
  Company Number: JP-VERTEX PHARMACEUTICALS INC.-AE-2012-008900

PATIENT
  Age: 77 Year
  Sex: Male

DRUGS (6)
  1. PEG-INTRON [Concomitant]
     Route: 058
     Dates: start: 20120608
  2. TELAVIC [Suspect]
     Indication: HEPATITIS C
     Route: 048
     Dates: start: 20120427
  3. PEG-INTRON [Concomitant]
     Indication: HEPATITIS C
     Route: 058
     Dates: start: 20120427, end: 20120511
  4. RIBAVIRIN [Concomitant]
     Route: 048
     Dates: start: 20120427
  5. PEG-INTRON [Concomitant]
     Route: 058
     Dates: start: 20120525, end: 20120525
  6. PEG-INTRON [Concomitant]
     Route: 058
     Dates: start: 20120601, end: 20120601

REACTIONS (1)
  - NEUTROPHIL COUNT DECREASED [None]
